FAERS Safety Report 19746419 (Version 3)
Quarter: 2025Q1

REPORT INFORMATION
  Report Type: Report from Study
  Country: BR (occurrence: BR)
  Receive Date: 20210825
  Receipt Date: 20250110
  Transmission Date: 20250409
  Serious: Yes (Disabling, Other)
  Sender: TAKEDA
  Company Number: BR-TAKEDA-2021TUS052827

PATIENT
  Sex: Male

DRUGS (3)
  1. IDURSULFASE [Suspect]
     Active Substance: IDURSULFASE
     Indication: Mucopolysaccharidosis II
  2. IDURSULFASE [Suspect]
     Active Substance: IDURSULFASE
     Dosage: UNK UNK, 1/WEEK
  3. SODIUM CHLORIDE [Suspect]
     Active Substance: SODIUM CHLORIDE
     Indication: Product used for unknown indication

REACTIONS (14)
  - Deafness [Unknown]
  - Hypokinesia [Not Recovered/Not Resolved]
  - Arthropathy [Unknown]
  - Pain [Unknown]
  - Pain in extremity [Unknown]
  - Intervertebral disc degeneration [Unknown]
  - Multiple allergies [Unknown]
  - Fatigue [Unknown]
  - Dyspnoea [Unknown]
  - Rash maculo-papular [Unknown]
  - Burning sensation [Not Recovered/Not Resolved]
  - Arthralgia [Not Recovered/Not Resolved]
  - Inappropriate schedule of product administration [Unknown]
  - Product prescribing error [Unknown]
